FAERS Safety Report 14305229 (Version 1)
Quarter: 2017Q4

REPORT INFORMATION
  Report Type: Spontaneous
  Country: DE (occurrence: DE)
  Receive Date: 20171219
  Receipt Date: 20171219
  Transmission Date: 20180321
  Serious: Yes (Hospitalization, Other)
  Sender: FDA-Public Use
  Company Number: DE-OTSUKA-DJ20107111

PATIENT
  Age: 19 Year
  Sex: Male
  Weight: 52.1 kg

DRUGS (2)
  1. ABILIFY [Suspect]
     Active Substance: ARIPIPRAZOLE
     Dosage: 2.5 MG, UNK
     Route: 065
  2. ABILIFY [Suspect]
     Active Substance: ARIPIPRAZOLE
     Indication: PRODUCT USED FOR UNKNOWN INDICATION
     Dosage: 5 MG, UNK
     Route: 065

REACTIONS (7)
  - Hallucination, auditory [Unknown]
  - Dissociation [Unknown]
  - Malaise [Unknown]
  - Suicidal ideation [Unknown]
  - Hypertensive crisis [Recovered/Resolved]
  - Stress [Unknown]
  - Depressed mood [Unknown]
